FAERS Safety Report 9577162 (Version 1)
Quarter: 2013Q4

REPORT INFORMATION
  Report Type: Spontaneous
  Country: US (occurrence: US)
  Receive Date: 20131001
  Receipt Date: 20131001
  Transmission Date: 20140711
  Serious: No
  Sender: FDA-Public Use
  Company Number: US-AMGEN-USASP2013006801

PATIENT
  Sex: Female

DRUGS (11)
  1. ENBREL [Suspect]
     Indication: PSORIATIC ARTHROPATHY
     Dosage: 50 MG, QWK
     Route: 058
  2. EVISTA [Concomitant]
     Dosage: 60 MG, UNK
  3. ATENOLOL [Concomitant]
     Dosage: 100 MG, UNK
  4. HYDROCHLOROTH [Concomitant]
     Dosage: 25 MG, UNK
  5. LEVOTHYROXIN [Concomitant]
     Dosage: 50 MUG, UNK
  6. CRESTOR [Concomitant]
     Dosage: 10 MG, UNK
  7. VITAMIN E                          /00110501/ [Concomitant]
     Dosage: 100 UNIT, UNK
  8. LOSARTAN POTASSIUM [Concomitant]
     Dosage: 100 MG, UNK
  9. ACIPHEX [Concomitant]
     Dosage: 20 MG, UNK
  10. CALCIUM + VITAMIN D                /01483701/ [Concomitant]
     Dosage: UNK
  11. VITAMIN D3 [Concomitant]
     Dosage: 5000 UNIT, UNK

REACTIONS (1)
  - Arthralgia [Unknown]
